FAERS Safety Report 4397075-5 (Version None)
Quarter: 2004Q3

REPORT INFORMATION
  Report Type: 
  Country: None (occurrence: None)
  Receive Date: 20040708
  Receipt Date: 20040701
  Transmission Date: 20050211
  Serious: Yes (Life-Threatening)
  Sender: FDA-Public Use
  Company Number: 200312244GDS

PATIENT
  Age: 55 Year
  Sex: Female
  Weight: 92 kg

DRUGS (16)
  1. CIPROFLOXACIN [Suspect]
     Indication: THERMAL BURN
     Dosage: 400 MG, TID, INTRAVENOUS
     Route: 042
     Dates: start: 20030709, end: 20030716
  2. EUTIROX [Concomitant]
  3. CODEX [Concomitant]
  4. ENAPREN [Concomitant]
  5. NORVASC [Concomitant]
  6. CARDURA [Concomitant]
  7. ENOXAPARIN SODIUM [Concomitant]
  8. HUMULIN R [Concomitant]
  9. HUMULIN I [Concomitant]
  10. TENACID [Concomitant]
  11. TARGOSID [Concomitant]
  12. RANIDIL [Concomitant]
  13. LANOXIN [Concomitant]
  14. LASIX [Concomitant]
  15. TRAMADOL HCL [Concomitant]
  16. ZOFRAN [Concomitant]

REACTIONS (1)
  - GASTRIC ULCER PERFORATION [None]
